FAERS Safety Report 10152123 (Version 2)
Quarter: 2014Q3

REPORT INFORMATION
  Report Type: Spontaneous
  Country: CA (occurrence: CA)
  Receive Date: 20140505
  Receipt Date: 20140715
  Transmission Date: 20150326
  Serious: Yes (Other)
  Sender: FDA-Public Use
  Company Number: CA-ROCHE-1393055

PATIENT
  Age: 38 Year
  Sex: Female

DRUGS (9)
  1. ALVESCO [Concomitant]
     Active Substance: CICLESONIDE
  2. RABEPRAZOLE [Concomitant]
     Active Substance: RABEPRAZOLE
  3. ADVAIR HFA [Concomitant]
     Active Substance: FLUTICASONE PROPIONATE\SALMETEROL XINAFOATE
  4. RANITIDINE [Concomitant]
     Active Substance: RANITIDINE\RANITIDINE HYDROCHLORIDE
  5. CETIRIZINE [Concomitant]
     Active Substance: CETIRIZINE HYDROCHLORIDE
  6. SINGULAIR [Concomitant]
     Active Substance: MONTELUKAST SODIUM
  7. ZOLOFT [Concomitant]
     Active Substance: SERTRALINE HYDROCHLORIDE
  8. XOLAIR [Suspect]
     Active Substance: OMALIZUMAB
     Indication: ASTHMA
     Route: 058
     Dates: start: 201312
  9. OMNARIS [Concomitant]
     Active Substance: CICLESONIDE
     Route: 045

REACTIONS (4)
  - Anaphylactic reaction [Recovered/Resolved]
  - Asthma [Recovered/Resolved]
  - Glomerular filtration rate decreased [Not Recovered/Not Resolved]
  - Blood urea decreased [Not Recovered/Not Resolved]

NARRATIVE: CASE EVENT DATE: 20131205
